FAERS Safety Report 9055804 (Version 1)
Quarter: 2013Q1

REPORT INFORMATION
  Report Type: Spontaneous
  Country: US (occurrence: US)
  Receive Date: 20130206
  Receipt Date: 20130206
  Transmission Date: 20140127
  Serious: No
  Sender: FDA-Public Use
  Company Number: US-ASTRAZENECA-2013SE07039

PATIENT
  Age: 68 Year
  Sex: Female
  Weight: 68 kg

DRUGS (5)
  1. SYMBICORT PMDI [Suspect]
     Indication: CHRONIC OBSTRUCTIVE PULMONARY DISEASE
     Dosage: 2 PUFFS, TWO TIMES A DAY
     Route: 055
  2. OMEPRAZOLE [Suspect]
     Indication: GASTROOESOPHAGEAL REFLUX DISEASE
     Route: 048
  3. BUYSTOLIC [Concomitant]
     Indication: HYPERTENSION
     Route: 048
     Dates: start: 2009
  4. BENACAR [Concomitant]
     Indication: HYPERTENSION
     Dosage: 40/125 MG,DAILY
     Route: 048
     Dates: start: 2009
  5. SYNTHROID [Concomitant]
     Indication: THYROID DISORDER
     Route: 050

REACTIONS (3)
  - Sneezing [Unknown]
  - Dyspnoea [Unknown]
  - Cough [Unknown]
